FAERS Safety Report 23239081 (Version 1)
Quarter: 2023Q4

REPORT INFORMATION
  Report Type: Spontaneous
  Country: CN (occurrence: CN)
  Receive Date: 20231129
  Receipt Date: 20231129
  Transmission Date: 20240109
  Serious: Yes (Other)
  Sender: FDA-Public Use
  Company Number: CN-SA-SAC20231122000980

PATIENT
  Age: 20 Year
  Sex: Male
  Weight: 76 kg

DRUGS (1)
  1. ZOLPIDEM TARTRATE [Suspect]
     Active Substance: ZOLPIDEM TARTRATE
     Indication: Insomnia
     Dosage: 10 MG, QD
     Route: 048
     Dates: start: 20231110, end: 20231110

REACTIONS (4)
  - Alcohol poisoning [Recovering/Resolving]
  - Coordination abnormal [Recovering/Resolving]
  - Mental disorder [Recovering/Resolving]
  - Disorganised speech [Recovering/Resolving]

NARRATIVE: CASE EVENT DATE: 20231110
